FAERS Safety Report 5181320-2 (Version None)
Quarter: 2006Q4

REPORT INFORMATION
  Report Type: 
  Country: None (occurrence: None)
  Receive Date: 20061220
  Receipt Date: 20051211
  Transmission Date: 20070319
  Serious: No
  Sender: FDA-Public Use
  Company Number: US-GLAXOSMITHKLINE-A0585619A

PATIENT
  Sex: Female

DRUGS (3)
  1. COMMIT [Suspect]
     Dates: start: 20051211, end: 20051211
  2. NICODERM CQ [Suspect]
  3. NICODERM CQ [Suspect]

REACTIONS (4)
  - ANGER [None]
  - ANXIETY [None]
  - SKIN IRRITATION [None]
  - TENSION [None]
